FAERS Safety Report 6637418-2 (Version None)
Quarter: 2010Q1

REPORT INFORMATION
  Report Type: 
  Country: None (occurrence: None)
  Receive Date: 20100311
  Receipt Date: 20100304
  Transmission Date: 20100710
  Serious: Yes (Death)
  Sender: FDA-Public Use
  Company Number: 2010JP000832

PATIENT
  Age: 75 Year
  Sex: Male

DRUGS (2)
  1. PROGRAF [Suspect]
     Indication: RHEUMATOID ARTHRITIS
     Dosage: ORAL
     Route: 048
  2. RHEUMATREX [Concomitant]

REACTIONS (1)
  - PNEUMONIA BACTERIAL [None]
